FAERS Safety Report 8558025 (Version 5)
Quarter: 2013Q4

REPORT INFORMATION
  Report Type: Spontaneous
  Country: JP (occurrence: JP)
  Receive Date: 20120507
  Receipt Date: 20131031
  Transmission Date: 20140711
  Serious: Yes (Other)
  Sender: FDA-Public Use
  Company Number: JP-009507513-2012SP021971

PATIENT
  Age: 84 Year
  Sex: Female

DRUGS (8)
  1. REFLEX [Suspect]
     Indication: DEPRESSION
     Dosage: 15 MG, QD
     Route: 048
     Dates: start: 20120413
  2. SEROQUEL [Interacting]
     Indication: GASTRITIS
     Dosage: 50 MG, QD
     Route: 048
     Dates: end: 20120421
  3. SEROQUEL [Interacting]
     Indication: DELIRIUM
  4. DONEPEZIL HYDROCHLORIDE [Concomitant]
     Indication: DEMENTIA
     Dosage: UPDATE(24MAY2012): INDICATION
     Route: 048
  5. RANITIDINE HYDROCHLORIDE [Concomitant]
     Indication: GASTRITIS
     Dosage: UPDATE(24MAY2012): INDICATION
     Route: 048
  6. TRIAZOLAM [Concomitant]
     Indication: INSOMNIA
     Dosage: UPDATE(24MAY2012): INDICATION
     Route: 048
  7. URSODIOL [Concomitant]
     Indication: LIVER DISORDER
     Dosage: UPDATE(24MAY2012): INDICATION AND DOSE
     Route: 048
  8. MEXILETINE HYDROCHLORIDE [Concomitant]
     Indication: HYPOAESTHESIA
     Dosage: UPDATE(24MAY2012)
     Route: 048
     Dates: start: 20120416, end: 20120423

REACTIONS (3)
  - Drug interaction [Unknown]
  - Asthenia [Recovered/Resolved]
  - Tremor [Recovering/Resolving]
